FAERS Safety Report 6003125-2 (Version None)
Quarter: 2008Q4

REPORT INFORMATION
  Report Type: 
  Country: None (occurrence: None)
  Receive Date: 20081216
  Receipt Date: 20081209
  Transmission Date: 20090506
  Serious: Yes (Other)
  Sender: FDA-Public Use
  Company Number: US-ASTRAZENECA-2008UW23458

PATIENT
  Age: 47 Year
  Sex: Female
  Weight: 55.6 kg

DRUGS (3)
  1. SEROQUEL [Suspect]
     Indication: HYPOMANIA
     Dosage: 12.5 MG TO 25 MG DAILY
     Route: 048
     Dates: start: 20080924, end: 20080926
  2. SEROQUEL [Suspect]
     Indication: INSOMNIA
     Dosage: 12.5 MG TO 25 MG DAILY
     Route: 048
     Dates: start: 20080924, end: 20080926
  3. LAMICTAL [Concomitant]
     Indication: AFFECTIVE DISORDER
     Route: 048
     Dates: start: 20080924, end: 20080926

REACTIONS (3)
  - FALL [None]
  - HEAD INJURY [None]
  - LOSS OF CONSCIOUSNESS [None]
